FAERS Safety Report 6030508-7 (Version None)
Quarter: 2009Q1

REPORT INFORMATION
  Report Type: 
  Country: None (occurrence: None)
  Receive Date: 20090105
  Receipt Date: 20090105
  Transmission Date: 20090719
  Serious: No
  Sender: FDA-Public Use
  Company Number: None

PATIENT
  Sex: Male
  Weight: 58.9676 kg

DRUGS (1)
  1. ETHAMBUTOL HCL [Suspect]
     Indication: ATYPICAL MYCOBACTERIAL INFECTION
     Dosage: 900MG. ONCE A DAY
     Dates: start: 20080610, end: 20081216

REACTIONS (1)
  - VISUAL IMPAIRMENT [None]
